FAERS Safety Report 5096618-6 (Version None)
Quarter: 2006Q3

REPORT INFORMATION
  Report Type: 
  Country: None (occurrence: None)
  Receive Date: 20060831
  Receipt Date: 20060815
  Transmission Date: 20061208
  Serious: Yes (Death, Hospitalization)
  Sender: FDA-Public Use
  Company Number: PAR_0750_2006

PATIENT
  Age: 44 Year
  Sex: Male
  Weight: 85.3 kg

DRUGS (7)
  1. DOXYCYCLINE [Suspect]
     Indication: SCROTAL INFECTION
     Dosage: DF PO
     Route: 048
     Dates: start: 20060602
  2. AZATHIOPRINE [Suspect]
     Indication: GASTROINTESTINAL DISORDER
     Dosage: 150 MG QDAY PO
     Route: 048
  3. REMICADE [Suspect]
     Dosage: DF IV
     Route: 042
  4. COLAZAL [Suspect]
     Dosage: 4 TAB TID
  5. TYLENOL EXTRA-STRENGTH [Suspect]
     Indication: SCROTAL PAIN
     Dosage: 12 TAB QDAY
  6. ADVIL [Suspect]
     Indication: SCROTAL PAIN
     Dosage: DF
  7. ALEVE (CAPLET) [Suspect]
     Indication: SCROTAL PAIN
     Dosage: DF

REACTIONS (8)
  - BLOOD PRESSURE INCREASED [None]
  - DIALYSIS [None]
  - HEPATIC FAILURE [None]
  - INADEQUATE ANALGESIA [None]
  - MEMORY IMPAIRMENT [None]
  - OEDEMA PERIPHERAL [None]
  - ORCHITIS [None]
  - RENAL FAILURE [None]
